FAERS Safety Report 7040627-4 (Version None)
Quarter: 2010Q4

REPORT INFORMATION
  Report Type: 
  Country: None (occurrence: None)
  Receive Date: 20101006
  Receipt Date: 20100921
  Transmission Date: 20110411
  Serious: Yes (Life-Threatening, Hospitalization, Other)
  Sender: FDA-Public Use
  Company Number: BVT-000680

PATIENT
  Age: 10 Year
  Weight: 40 kg

DRUGS (1)
  1. KINERET [Suspect]
     Indication: JUVENILE ARTHRITIS
     Dosage: (100 MG SUBCUTANEOUS)
     Route: 058
     Dates: start: 20081201, end: 20100918

REACTIONS (4)
  - BRONCHIAL HYPERREACTIVITY [None]
  - DISEASE RECURRENCE [None]
  - JUVENILE ARTHRITIS [None]
  - RESPIRATORY DISTRESS [None]
